FAERS Safety Report 22349534 (Version 1)
Quarter: 2023Q2

REPORT INFORMATION
  Report Type: Spontaneous
  Country: US (occurrence: None)
  Receive Date: 20230519
  Receipt Date: 20230519
  Transmission Date: 20230722
  Serious: No
  Sender: FDA-Public Use
  Company Number: None

PATIENT
  Sex: 0

DRUGS (1)
  1. PAIN RELIEVER FEVER REDUCER EXTRA STRENGTH [Suspect]
     Active Substance: ACETAMINOPHEN
     Dosage: OTHER QUANTITY : 2 TABLESPOON(S);?FREQUENCY : EVERY 6 HOURS;?
     Route: 048

REACTIONS (2)
  - Product label confusion [None]
  - Product use complaint [None]
